FAERS Safety Report 8630870 (Version 4)
Quarter: 2013Q2

REPORT INFORMATION
  Report Type: Report from Study
  Country: US (occurrence: US)
  Receive Date: 20120622
  Receipt Date: 20130419
  Transmission Date: 20140414
  Serious: Yes (Hospitalization, Other)
  Sender: FDA-Public Use
  Company Number: PHEH2012US012058

PATIENT
  Age: 18 Year
  Sex: Male

DRUGS (14)
  1. AFINITOR [Suspect]
     Dosage: 10 MG, QD
     Route: 048
     Dates: start: 20110501
  2. ZONEGRAN [Concomitant]
  3. NEXIUM [Concomitant]
  4. CARAFATE [Concomitant]
  5. ZANTAC [Concomitant]
  6. MIRALAX [Concomitant]
  7. ATIVAN [Concomitant]
  8. TEGRETOL XR [Concomitant]
  9. CLONAZEPAM [Concomitant]
  10. CLORAZEPATE [Concomitant]
  11. TRANXENE [Concomitant]
  12. L-LYSINE [Concomitant]
     Indication: APHTHOUS STOMATITIS
  13. VIT. E [Concomitant]
  14. MULTI VIT CHOICE [Concomitant]

REACTIONS (8)
  - Nephrolithiasis [Recovering/Resolving]
  - Pain [Recovering/Resolving]
  - Hyperventilation [Recovering/Resolving]
  - Convulsion [Recovering/Resolving]
  - Abnormal behaviour [Recovering/Resolving]
  - Mood altered [Recovering/Resolving]
  - Insomnia [Recovering/Resolving]
  - Aggression [Recovering/Resolving]
